FAERS Safety Report 4647796-1 (Version None)
Quarter: 2005Q2

REPORT INFORMATION
  Report Type: 
  Country: None (occurrence: None)
  Receive Date: 20050426
  Receipt Date: 20050412
  Transmission Date: 20051028
  Serious: Yes (Hospitalization)
  Sender: FDA-Public Use
  Company Number: 05P-056-0297186-00

PATIENT
  Age: 84 Year
  Sex: Female
  Weight: 67 kg

DRUGS (2)
  1. TRICOR [Suspect]
     Dosage: ORAL
     Route: 048
  2. FLUINDIONE [Concomitant]

REACTIONS (7)
  - BRONCHITIS [None]
  - CONFUSIONAL STATE [None]
  - DRUG INTERACTION [None]
  - INTERNATIONAL NORMALISED RATIO INCREASED [None]
  - PROTHROMBIN LEVEL DECREASED [None]
  - SINUSITIS [None]
  - SUPERINFECTION LUNG [None]
